FAERS Safety Report 9155252 (Version 1)
Quarter: 2013Q1

REPORT INFORMATION
  Report Type: Spontaneous
  Country: AU (occurrence: None)
  Receive Date: 20130208
  Receipt Date: 20130208
  Transmission Date: 20140127
  Serious: Yes (Hospitalization, Other)
  Sender: FDA-Public Use
  Company Number: 2013AP001147

PATIENT
  Age: 54 Year
  Sex: Female

DRUGS (1)
  1. TRAMADOL (TRAMADOL) [Suspect]
     Route: 048

REACTIONS (6)
  - Hypoglycaemia [None]
  - Intentional overdose [None]
  - Toxicity to various agents [None]
  - Suicidal ideation [None]
  - Convulsion [None]
  - Depressed level of consciousness [None]
